FAERS Safety Report 19112161 (Version 1)
Quarter: 2021Q2

REPORT INFORMATION
  Report Type: Spontaneous
  Country: CN (occurrence: CN)
  Receive Date: 20210408
  Receipt Date: 20210408
  Transmission Date: 20210717
  Serious: Yes (Other)
  Sender: FDA-Public Use
  Company Number: CN-PFIZER INC-2021355395

PATIENT
  Age: 33 Year
  Sex: Female
  Weight: 60 kg

DRUGS (1)
  1. METHOTREXATE. [Suspect]
     Active Substance: METHOTREXATE
     Indication: ECTOPIC PREGNANCY
     Dosage: 26 MG, 1X/DAY
     Route: 030
     Dates: start: 20210321, end: 20210325

REACTIONS (6)
  - Pruritus [Recovered/Resolved]
  - Face oedema [Recovering/Resolving]
  - Off label use [Unknown]
  - Rash maculo-papular [Recovering/Resolving]
  - Dermatitis allergic [Recovering/Resolving]
  - Eyelid oedema [Recovering/Resolving]

NARRATIVE: CASE EVENT DATE: 20210321
